FAERS Safety Report 8445241-1 (Version None)
Quarter: 2012Q2

REPORT INFORMATION
  Report Type: 
  Country: None (occurrence: None)
  Receive Date: 20120612
  Receipt Date: 20120612
  Transmission Date: 20120825
  Serious: Yes (Hospitalization)
  Sender: FDA-Public Use
  Company Number: None

PATIENT
  Age: 62 Year
  Sex: Female
  Weight: 58.9676 kg

DRUGS (2)
  1. BENADRYL [Suspect]
     Indication: ARTHROPOD STING
     Dosage: 1 PO
     Route: 048
     Dates: start: 20120607, end: 20120611
  2. BENADRYL [Suspect]
     Indication: ARTHROPOD STING
     Dosage: 1 PO
     Route: 048
     Dates: start: 20120611, end: 20120611

REACTIONS (6)
  - NAUSEA [None]
  - HEADACHE [None]
  - MUSCLE TWITCHING [None]
  - GLOSSODYNIA [None]
  - RESTLESSNESS [None]
  - PRURITUS [None]
